FAERS Safety Report 7458288-9 (Version None)
Quarter: 2011Q2

REPORT INFORMATION
  Report Type: 
  Country: None (occurrence: None)
  Receive Date: 20110504
  Receipt Date: 20110502
  Transmission Date: 20111010
  Serious: Yes (Hospitalization)
  Sender: FDA-Public Use
  Company Number: US-MERCK-0912USA03686

PATIENT
  Age: 63 Year
  Sex: Female

DRUGS (6)
  1. GLYBURIDE [Concomitant]
     Indication: TYPE 2 DIABETES MELLITUS
     Route: 065
  2. EFFEXOR [Concomitant]
     Indication: DEPRESSION
     Route: 065
  3. FOSAMAX [Suspect]
     Indication: OSTEOPOROSIS
     Route: 048
     Dates: start: 20051201
  4. CARTIA XT [Concomitant]
     Route: 065
  5. LASIX [Concomitant]
     Route: 065
  6. ASPIRIN [Concomitant]
     Route: 065

REACTIONS (8)
  - FEMUR FRACTURE [None]
  - ANAEMIA POSTOPERATIVE [None]
  - ANXIETY [None]
  - FRACTURE DELAYED UNION [None]
  - OSTEOARTHRITIS [None]
  - FALL [None]
  - DEPRESSION [None]
  - BURSITIS [None]
